FAERS Safety Report 6354095-9 (Version None)
Quarter: 2009Q3

REPORT INFORMATION
  Report Type: 
  Country: None (occurrence: None)
  Receive Date: 20090914
  Receipt Date: 20090907
  Transmission Date: 20100115
  Serious: Yes (Other)
  Sender: FDA-Public Use
  Company Number: PHHY2009GB29995

PATIENT

DRUGS (2)
  1. TEGRETOL [Suspect]
     Dosage: 400 MG, TID
  2. TEGRETOL [Suspect]
     Dosage: 400 MG, BID

REACTIONS (2)
  - CEREBROVASCULAR ACCIDENT [None]
  - CONVULSION [None]
